FAERS Safety Report 8241335-4 (Version None)
Quarter: 2012Q1

REPORT INFORMATION
  Report Type: 
  Country: None (occurrence: None)
  Receive Date: 20120328
  Receipt Date: 20120320
  Transmission Date: 20120608
  Serious: Yes (Hospitalization)
  Sender: FDA-Public Use
  Company Number: US-UCBSA-053761

PATIENT
  Age: 54 Year
  Sex: Female
  Weight: 69 kg

DRUGS (20)
  1. KLONOPIN [Concomitant]
     Indication: POST-TRAUMATIC STRESS DISORDER
     Dates: start: 20111130, end: 20120309
  2. SEROQUEL XR [Concomitant]
     Indication: DEPRESSION
     Dosage: ONCE NIGHTLY
     Dates: start: 20110418, end: 20120309
  3. STRESS TAB WITH C [Concomitant]
     Indication: MEDICAL DIET
     Dates: start: 20110722
  4. RHINOCORT NS [Concomitant]
     Indication: RHINITIS ALLERGIC
     Dosage: 1 SPRAY
     Route: 045
     Dates: start: 20000101
  5. PROZAC [Concomitant]
     Indication: DEPRESSION
     Dates: start: 20110824
  6. SALINE NS [Concomitant]
     Indication: RHINITIS ALLERGIC
     Dosage: 1 SPRAY
     Route: 045
     Dates: start: 20060101
  7. STRESS TAB WITH C [Concomitant]
     Dates: start: 20110722
  8. M.V.I. [Concomitant]
     Indication: SUPPLEMENTATION THERAPY
     Dosage: 1
     Route: 048
     Dates: start: 20060101
  9. FLAX SEED GEL CAP [Concomitant]
     Indication: SUPPLEMENTATION THERAPY
     Dosage: 1 CAPSULE ONCE DAILY
     Dates: start: 20111003
  10. METHOTREXATE [Concomitant]
     Indication: PSORIATIC ARTHROPATHY
     Dosage: 10 MG SUFFICIENT QUANTITY
     Route: 048
     Dates: start: 20101122
  11. TYLENOL [Concomitant]
     Indication: PAIN
     Dosage: 2 CAPSULES
     Dates: start: 20110609
  12. CERTOLIZUMAB PEGOL [Suspect]
     Indication: PSORIATIC ARTHROPATHY
     Route: 058
     Dates: start: 20110318
  13. ASPIRIN [Concomitant]
     Indication: PROPHYLAXIS
     Route: 048
     Dates: start: 20070101
  14. FOLIC ACID [Concomitant]
     Indication: SUPPLEMENTATION THERAPY
     Route: 048
     Dates: start: 20101122
  15. KLONOPIN [Concomitant]
     Indication: DEPRESSION
     Dates: start: 20111130, end: 20120309
  16. LIQUID TEARS [Concomitant]
     Indication: DRY EYE
     Dosage: 1 DROP
     Dates: start: 20100101
  17. PROZAC [Concomitant]
     Indication: POST-TRAUMATIC STRESS DISORDER
     Dates: start: 20110824
  18. PERCOCET [Concomitant]
     Indication: PAIN
     Dosage: 1 TABLET
     Dates: start: 20120224, end: 20120310
  19. SEROQUEL XR [Concomitant]
     Indication: POST-TRAUMATIC STRESS DISORDER
     Dosage: ONCE NIGHTLY
     Dates: start: 20110418, end: 20120309
  20. VISINE EYE DROP [Concomitant]
     Indication: DRY EYE
     Dosage: 1 DROP
     Dates: start: 20010101

REACTIONS (1)
  - PSYCHOTIC DISORDER [None]
